FAERS Safety Report 18442733 (Version 2)
Quarter: 2020Q4

REPORT INFORMATION
  Report Type: Report from Study
  Country: BR (occurrence: BR)
  Receive Date: 20201029
  Receipt Date: 20201118
  Transmission Date: 20210114
  Serious: Yes (Hospitalization, Other)
  Sender: FDA-Public Use
  Company Number: NVSC2020BR286770

PATIENT
  Age: 75 Year
  Sex: Male

DRUGS (1)
  1. VOTRIENT [Suspect]
     Active Substance: PAZOPANIB HYDROCHLORIDE
     Indication: METASTATIC RENAL CELL CARCINOMA
     Dosage: 400 MG, QD
     Route: 065
     Dates: start: 20200923, end: 20201003

REACTIONS (7)
  - Back pain [Recovering/Resolving]
  - Hallucination [Not Recovered/Not Resolved]
  - Eating disorder [Recovering/Resolving]
  - Cerebrovascular accident [Recovering/Resolving]
  - Loss of consciousness [Recovering/Resolving]
  - Asthenia [Not Recovered/Not Resolved]
  - Mobility decreased [Recovering/Resolving]

NARRATIVE: CASE EVENT DATE: 20201001
